FAERS Safety Report 7513627-5 (Version None)
Quarter: 2011Q2

REPORT INFORMATION
  Report Type: 
  Country: None (occurrence: None)
  Receive Date: 20110531
  Receipt Date: 20110526
  Transmission Date: 20111010
  Serious: Yes (Other)
  Sender: FDA-Public Use
  Company Number: US-BAYER-2011-046329

PATIENT
  Sex: Female

DRUGS (1)
  1. YASMIN [Suspect]
     Indication: PRODUCT USED FOR UNKNOWN INDICATION
     Dosage: UNK
     Dates: start: 20030201, end: 20030801

REACTIONS (5)
  - EMOTIONAL DISTRESS [None]
  - PULMONARY EMBOLISM [None]
  - ANHEDONIA [None]
  - PAIN [None]
  - INJURY [None]
